FAERS Safety Report 18923378 (Version 6)
Quarter: 2022Q2

REPORT INFORMATION
  Report Type: Report from Study
  Country: FR (occurrence: None)
  Receive Date: 20210222
  Receipt Date: 20220625
  Transmission Date: 20220721
  Serious: Yes (Hospitalization)
  Sender: FDA-Public Use
  Company Number: FR-ROCHE-2734552

PATIENT
  Age: 35 Year
  Sex: Female
  Weight: 62 kg

DRUGS (73)
  1. OCRELIZUMAB [Suspect]
     Active Substance: OCRELIZUMAB
     Indication: Relapsing-remitting multiple sclerosis
     Dosage: DATE OF MOST RECENT DOSE OF OCRELIZUMAB PRIOR TO THIS EVENT ONSET WAS 25/NOV/2020?OCRELIZUMAB WILL B
     Route: 042
     Dates: start: 20180124
  2. METHYLPREDNISOLONE [Suspect]
     Active Substance: METHYLPREDNISOLONE
     Indication: Premedication
     Dosage: THERAPY DATES: 07/FEB/2018, 11/JUL/2018, 19/DEC/2018, 19/JUN/2019, 06/DEC/2019, 03/JUN/2020, 25/NOV/
     Route: 042
     Dates: start: 20180124
  3. FLUTICASONE FUROATE [Concomitant]
     Active Substance: FLUTICASONE FUROATE
     Route: 045
     Dates: end: 20180331
  4. FLUTICASONE FUROATE [Concomitant]
     Active Substance: FLUTICASONE FUROATE
     Route: 055
     Dates: start: 20200603
  5. FLUTICASONE FUROATE [Concomitant]
     Active Substance: FLUTICASONE FUROATE
     Route: 055
  6. BILASTINE [Concomitant]
     Active Substance: BILASTINE
     Route: 048
     Dates: start: 20180901, end: 20181201
  7. BILASTINE [Concomitant]
     Active Substance: BILASTINE
     Route: 048
     Dates: start: 20190421, end: 20200603
  8. BILASTINE [Concomitant]
     Active Substance: BILASTINE
     Route: 048
     Dates: start: 20201024
  9. EFFERALGAN [Concomitant]
     Active Substance: ACETAMINOPHEN
     Indication: Bronchitis
     Route: 048
     Dates: start: 20180826, end: 20180909
  10. ESOMEPRAZOLE [Concomitant]
     Active Substance: ESOMEPRAZOLE
     Route: 048
     Dates: start: 20200204, end: 20200209
  11. INFLUENZA VIRUS VACCINE [Concomitant]
     Active Substance: INFLUENZA VIRUS VACCINE
     Route: 030
  12. LACTOBACILLUS RHAMNOSUS [Concomitant]
     Active Substance: LACTOBACILLUS RHAMNOSUS
     Indication: Vaginal discharge
     Dates: start: 20190613, end: 20190613
  13. EBASTINE [Concomitant]
     Active Substance: EBASTINE
     Route: 045
     Dates: end: 20180831
  14. EBASTINE [Concomitant]
     Active Substance: EBASTINE
     Route: 045
     Dates: start: 20200603
  15. LAMISIL [Concomitant]
     Active Substance: TERBINAFINE HYDROCHLORIDE
     Indication: Vulvovaginal erythema
     Dates: start: 20191104, end: 20191111
  16. AMITRIPTYLINE HYDROCHLORIDE [Concomitant]
     Active Substance: AMITRIPTYLINE HYDROCHLORIDE
     Indication: Depression
     Route: 048
     Dates: start: 20191207, end: 20191217
  17. AMITRIPTYLINE HYDROCHLORIDE [Concomitant]
     Active Substance: AMITRIPTYLINE HYDROCHLORIDE
     Route: 048
     Dates: start: 20191218, end: 20191228
  18. AMITRIPTYLINE HYDROCHLORIDE [Concomitant]
     Active Substance: AMITRIPTYLINE HYDROCHLORIDE
     Route: 048
     Dates: start: 20191229, end: 20200107
  19. AMITRIPTYLINE HYDROCHLORIDE [Concomitant]
     Active Substance: AMITRIPTYLINE HYDROCHLORIDE
     Route: 048
     Dates: start: 20200108, end: 20200118
  20. AMITRIPTYLINE HYDROCHLORIDE [Concomitant]
     Active Substance: AMITRIPTYLINE HYDROCHLORIDE
     Route: 048
     Dates: start: 20200119, end: 20200129
  21. AMITRIPTYLINE HYDROCHLORIDE [Concomitant]
     Active Substance: AMITRIPTYLINE HYDROCHLORIDE
     Route: 048
     Dates: start: 20200130, end: 20200205
  22. AMITRIPTYLINE HYDROCHLORIDE [Concomitant]
     Active Substance: AMITRIPTYLINE HYDROCHLORIDE
     Route: 048
     Dates: start: 20200206, end: 20200531
  23. AMITRIPTYLINE HYDROCHLORIDE [Concomitant]
     Active Substance: AMITRIPTYLINE HYDROCHLORIDE
     Route: 048
     Dates: start: 20200601, end: 20201023
  24. AMITRIPTYLINE HYDROCHLORIDE [Concomitant]
     Active Substance: AMITRIPTYLINE HYDROCHLORIDE
     Route: 048
     Dates: start: 20201024, end: 20201227
  25. AMITRIPTYLINE HYDROCHLORIDE [Concomitant]
     Active Substance: AMITRIPTYLINE HYDROCHLORIDE
     Route: 048
     Dates: start: 20201228
  26. ETHINYL ESTRADIOL\LEVONORGESTREL [Concomitant]
     Active Substance: ETHINYL ESTRADIOL\LEVONORGESTREL
     Indication: Contraception
     Route: 048
     Dates: end: 20200603
  27. LEVOTHYROXINE [Concomitant]
     Active Substance: LEVOTHYROXINE
     Route: 048
     Dates: start: 20181108
  28. LEVOTHYROXINE [Concomitant]
     Active Substance: LEVOTHYROXINE
     Route: 048
     Dates: end: 20181107
  29. MAXILASE [Concomitant]
     Active Substance: PANCRELIPASE
     Indication: Nasopharyngitis
     Route: 048
     Dates: start: 20180224, end: 20180225
  30. SERTACONAZOLE NITRATE [Concomitant]
     Active Substance: SERTACONAZOLE NITRATE
     Indication: Vaginal discharge
     Route: 048
     Dates: start: 20190516, end: 20190516
  31. MOVICOL [Concomitant]
     Active Substance: POLYETHYLENE GLYCOL 3350\POTASSIUM CHLORIDE\SODIUM BICARBONATE\SODIUM CHLORIDE
     Indication: Constipation
     Route: 048
  32. ACETAMINOPHEN [Concomitant]
     Active Substance: ACETAMINOPHEN
     Indication: Vulvovaginal pain
     Route: 048
     Dates: start: 20200123, end: 20200213
  33. ACETAMINOPHEN [Concomitant]
     Active Substance: ACETAMINOPHEN
     Indication: Inflammation
  34. PNEUMOVAX 23 [Concomitant]
     Active Substance: PNEUMOCOCCAL VACCINE, POLYVALENT 23
     Route: 030
     Dates: start: 20180607, end: 20180607
  35. PREDNISOLONE [Concomitant]
     Active Substance: PREDNISOLONE
     Indication: Bronchitis
     Route: 048
     Dates: start: 20180302, end: 20180305
  36. PREDNISOLONE [Concomitant]
     Active Substance: PREDNISOLONE
     Indication: Inflammation
     Route: 048
     Dates: start: 20200130, end: 20200228
  37. PREDNISOLONE [Concomitant]
     Active Substance: PREDNISOLONE
     Indication: Depression
     Route: 048
     Dates: start: 20180905, end: 20180907
  38. PREDNISOLONE [Concomitant]
     Active Substance: PREDNISOLONE
     Route: 048
     Dates: start: 20201024, end: 20210107
  39. PREDNISOLONE [Concomitant]
     Active Substance: PREDNISOLONE
     Route: 048
     Dates: start: 20200301, end: 20200601
  40. PREDNISOLONE [Concomitant]
     Active Substance: PREDNISOLONE
     Route: 048
     Dates: start: 20180905, end: 20180907
  41. POLYGINAX [Concomitant]
     Indication: Vaginal discharge
     Dosage: 1 OTHER
     Route: 030
     Dates: start: 20180607, end: 20180607
  42. POLYGINAX [Concomitant]
     Dosage: 1 OTHER
     Dates: start: 20190527, end: 20190602
  43. KETOPROFEN [Concomitant]
     Active Substance: KETOPROFEN
     Indication: Inflammation
     Route: 048
     Dates: start: 20200123, end: 20200213
  44. INFLUENZA VIRUS VACCINE [Concomitant]
     Active Substance: INFLUENZA VIRUS VACCINE
     Indication: Inflammation
     Route: 048
     Dates: start: 20181120, end: 20181120
  45. SECNIDAZOLE [Concomitant]
     Active Substance: SECNIDAZOLE
     Indication: Vaginal discharge
     Route: 048
     Dates: start: 20190506, end: 20190530
  46. PREDNISOLONE SODIUM METAZOATE [Concomitant]
     Active Substance: PREDNISOLONE SODIUM METAZOATE
     Indication: Bronchitis
     Route: 048
     Dates: start: 20190426, end: 20190502
  47. PHLOROGLUCINOL\1,3,5-TRIMETHOXYBENZENE [Concomitant]
     Active Substance: PHLOROGLUCINOL\1,3,5-TRIMETHOXYBENZENE
     Indication: Vulvovaginal pain
     Route: 048
     Dates: start: 20200205, end: 20200220
  48. TOBRADEX [Concomitant]
     Active Substance: DEXAMETHASONE\TOBRAMYCIN
     Indication: Dry eye
     Route: 047
     Dates: end: 20190831
  49. TOVIAZ [Concomitant]
     Active Substance: FESOTERODINE FUMARATE
     Indication: Multiple sclerosis relapse
     Route: 048
     Dates: start: 20200320, end: 20200325
  50. TRAMADOL [Concomitant]
     Active Substance: TRAMADOL
     Indication: Inflammation
     Route: 048
     Dates: start: 20200123, end: 20200213
  51. TRAMADOL [Concomitant]
     Active Substance: TRAMADOL
     Indication: Depression
     Route: 048
     Dates: start: 20201024
  52. TRAMADOL [Concomitant]
     Active Substance: TRAMADOL
     Route: 048
     Dates: start: 20201024
  53. CETIRIZINE [Concomitant]
     Active Substance: CETIRIZINE HYDROCHLORIDE
     Indication: Premedication
     Dosage: THERAPY DATES: 07/FEB/2018, 11/JUL/2018, 19/DEC/2018, 19/JUN/2019, 06/DEC/2019, 03/JUN/2020 AND 25/N
     Route: 048
     Dates: start: 20180124
  54. POLARAMINE [Concomitant]
     Active Substance: DEXCHLORPHENIRAMINE MALEATE
     Indication: Premedication
     Dosage: THERAPY DATES: 07/FEB/2018, 11/JUL/2018, 19/DEC/2018, 19/JUN/2019, 03/JUN/2020 AND 25/NOV/2020.
     Route: 048
     Dates: start: 20180124
  55. DOLIPRANE [Concomitant]
     Active Substance: ACETAMINOPHEN
     Indication: Premedication
     Dosage: THERAPY DATES: 07/FEB/2018, 11/JUL/2018, 19/DEC/2018, 19/JUN/2019, 06/DEC/2019, 03/JUN/2020 AND 25/N
     Route: 048
     Dates: start: 20180124
  56. DOLIPRANE [Concomitant]
     Active Substance: ACETAMINOPHEN
     Indication: Headache
     Route: 048
     Dates: start: 20180611, end: 20180613
  57. DOLIPRANE [Concomitant]
     Active Substance: ACETAMINOPHEN
     Indication: Infusion related reaction
     Route: 048
     Dates: start: 20181228, end: 20181229
  58. DOLIPRANE [Concomitant]
     Active Substance: ACETAMINOPHEN
     Route: 048
     Dates: start: 20190429, end: 20190505
  59. DOLIPRANE [Concomitant]
     Active Substance: ACETAMINOPHEN
     Route: 048
     Dates: start: 20201118
  60. ZOPICLONE [Concomitant]
     Active Substance: ZOPICLONE
     Indication: Depression
     Route: 048
     Dates: start: 20201118, end: 20201218
  61. BISACODYL [Concomitant]
     Active Substance: BISACODYL
     Indication: Multiple sclerosis
     Route: 048
     Dates: start: 20201024
  62. DULOXETINE [Concomitant]
     Active Substance: DULOXETINE
     Indication: Depression
     Route: 048
     Dates: start: 20201228
  63. POLYETHYLENE GLYCOL 4000 [Concomitant]
     Active Substance: POLYETHYLENE GLYCOL 4000
     Route: 048
     Dates: start: 20201221, end: 20210106
  64. POLYETHYLENE GLYCOL 4000 [Concomitant]
     Active Substance: POLYETHYLENE GLYCOL 4000
     Route: 048
     Dates: start: 20210107
  65. MINERAL OIL [Concomitant]
     Active Substance: MINERAL OIL
     Dosage: 1 UNIT
     Route: 048
     Dates: start: 20210107
  66. OMEPRAZOLE [Concomitant]
     Active Substance: OMEPRAZOLE
     Route: 048
     Dates: start: 20201120
  67. ACETAMINOPHEN [Concomitant]
     Active Substance: ACETAMINOPHEN
     Indication: Vulvovaginal pain
     Route: 048
     Dates: start: 20200205, end: 20200220
  68. ACETAMINOPHEN [Concomitant]
     Active Substance: ACETAMINOPHEN
     Route: 048
     Dates: start: 20200123, end: 20200123
  69. OXAZEPAM [Concomitant]
     Active Substance: OXAZEPAM
     Indication: Depression
     Route: 048
     Dates: start: 20201024
  70. KETOPROFEN [Concomitant]
     Active Substance: KETOPROFEN
     Indication: Torticollis
     Route: 048
     Dates: start: 20180227, end: 20180303
  71. KETOPROFEN [Concomitant]
     Active Substance: KETOPROFEN
     Indication: Vulvovaginal pain
     Route: 048
     Dates: start: 20200205, end: 20200210
  72. KETOPROFEN [Concomitant]
     Active Substance: KETOPROFEN
     Route: 048
     Dates: start: 20201120
  73. LEVOCETIRIZINE DIHYDROCHLORIDE [Concomitant]
     Active Substance: LEVOCETIRIZINE DIHYDROCHLORIDE
     Indication: Prophylaxis
     Route: 048
     Dates: start: 20210302

REACTIONS (1)
  - Vaginal infection [Recovered/Resolved]

NARRATIVE: CASE EVENT DATE: 20201212
